FAERS Safety Report 4323481-0 (Version None)
Quarter: 2004Q1

REPORT INFORMATION
  Report Type: 
  Country: None (occurrence: None)
  Receive Date: 20040325
  Receipt Date: 20040315
  Transmission Date: 20041129
  Serious: Yes (Hospitalization)
  Sender: FDA-Public Use
  Company Number: PHEH2004US03045

PATIENT
  Age: 45 Year
  Sex: Female

DRUGS (4)
  1. SANDOSTATIN LAR [Suspect]
     Indication: CARCINOID SYNDROME
     Dosage: 30 MG, QMO
  2. LOTREL [Concomitant]
     Indication: HYPERTENSION
     Dosage: 10MG - 20 MG DAILY
  3. LABETALOL HCL [Concomitant]
     Indication: HYPERTENSION
     Dosage: 20 MG, BID
  4. EFFEXOR XR [Concomitant]
     Dosage: 75 MG, TID

REACTIONS (1)
  - AUTONOMIC NERVE OPERATION [None]
